FAERS Safety Report 8645194 (Version 3)
Quarter: 2014Q2

REPORT INFORMATION
  Report Type: Spontaneous
  Country: US (occurrence: US)
  Receive Date: 20120702
  Receipt Date: 20140507
  Transmission Date: 20141212
  Serious: Yes (Hospitalization, Other)
  Sender: FDA-Public Use
  Company Number: US-ASTRAZENECA-2011SE33405

PATIENT
  Age: 84 Year
  Sex: Female
  Weight: 72.6 kg

DRUGS (8)
  1. NEXIUM [Suspect]
     Indication: DYSPEPSIA
     Route: 048
     Dates: start: 2008
  2. PRILOSEC [Suspect]
     Indication: DYSPEPSIA
     Dosage: DAILY
     Route: 048
  3. PRILOSEC [Suspect]
     Indication: DYSPEPSIA
     Dosage: GENERIC DAILY
     Route: 048
  4. HYDROCODONE APA [Concomitant]
     Indication: RHEUMATOID ARTHRITIS
     Dosage: 7.5-325 PRN
     Route: 048
  5. POTASSIUM [Concomitant]
     Indication: FLUID RETENTION
     Route: 048
  6. VITAMIN E [Concomitant]
     Indication: SUPPLEMENTATION THERAPY
     Route: 048
  7. VITAMIN D [Concomitant]
     Indication: SUPPLEMENTATION THERAPY
     Route: 048
     Dates: start: 20140425
  8. LASIX [Concomitant]
     Indication: SWELLING
     Dosage: 40 MG PRN DAILY
     Route: 048

REACTIONS (6)
  - Fall [Unknown]
  - Pelvic fracture [Recovered/Resolved]
  - Fibromyalgia [Unknown]
  - Drug dose omission [Recovered/Resolved]
  - Mobility decreased [Unknown]
  - Intentional product misuse [Unknown]
